FAERS Safety Report 5990145-7 (Version None)
Quarter: 2008Q4

REPORT INFORMATION
  Report Type: 
  Country: None (occurrence: None)
  Receive Date: 20081210
  Receipt Date: 20081125
  Transmission Date: 20090506
  Serious: Yes (Hospitalization)
  Sender: FDA-Public Use
  Company Number: 2008003056

PATIENT
  Age: 56 Year

DRUGS (7)
  1. ERLOTINIB (ERLOTINIB) (TABLET) (ERLOTINIB) [Suspect]
     Indication: NON-SMALL CELL LUNG CANCER
     Dosage: 150 MG, ORAL
     Route: 048
     Dates: start: 20080825, end: 20081119
  2. BEVACIZUMAB (INJECTION FOR INFUSION) [Suspect]
     Indication: NON-SMALL CELL LUNG CANCER
     Dosage: 15 MG/KG, Q21 DAYS, INTRAVENOUS
     Route: 042
     Dates: start: 20080825
  3. ACETAMINOPHEN [Concomitant]
  4. FENISTIL (DIMETINDENE MALEATE) [Concomitant]
  5. PANTOPRAZOLE SODIUM [Concomitant]
  6. CITALOPRAM HYDROBROMIDE [Concomitant]
  7. MORPHINE [Concomitant]

REACTIONS (4)
  - HEADACHE [None]
  - HYPERREFLEXIA [None]
  - MYOCLONIC EPILEPSY [None]
  - VOMITING [None]
